FAERS Safety Report 7466179-2 (Version None)
Quarter: 2011Q2

REPORT INFORMATION
  Report Type: 
  Country: None (occurrence: None)
  Receive Date: 20110509
  Receipt Date: 20110427
  Transmission Date: 20111010
  Serious: Yes (Other)
  Sender: FDA-Public Use
  Company Number: PHHY2009LT03202

PATIENT
  Age: 2 Year
  Sex: Male

DRUGS (2)
  1. ELIDEL [Suspect]
     Indication: DERMATITIS ATOPIC
     Dosage: UNK
     Route: 061
  2. ELIDEL [Suspect]
     Dosage: UNK
     Route: 048
     Dates: start: 20090126

REACTIONS (1)
  - ACCIDENTAL EXPOSURE [None]
